FAERS Safety Report 9257976 (Version 1)
Quarter: 2013Q2

REPORT INFORMATION
  Report Type: Spontaneous
  Country: IN (occurrence: None)
  Receive Date: 20130423
  Receipt Date: 20130423
  Transmission Date: 20140414
  Serious: Yes (Death)
  Sender: FDA-Public Use
  Company Number: CC400176568

PATIENT
  Age: 62 Year
  Sex: Male

DRUGS (2)
  1. CEFTAZIDIME [Suspect]
     Indication: PITUITARY TUMOUR
  2. CIPROFLOXACIN [Suspect]
     Indication: PITUITARY TUMOUR

REACTIONS (3)
  - Status epilepticus [None]
  - Blood sodium increased [None]
  - Nuclear magnetic resonance imaging brain abnormal [None]
